FAERS Safety Report 21555415 (Version 4)
Quarter: 2023Q2

REPORT INFORMATION
  Report Type: Report from Study
  Country: US (occurrence: US)
  Receive Date: 20221104
  Receipt Date: 20230516
  Transmission Date: 20230721
  Serious: Yes (Hospitalization, Other)
  Sender: FDA-Public Use
  Company Number: US-SERVIER-S22005718

PATIENT

DRUGS (63)
  1. VINCRISTINE [Suspect]
     Active Substance: VINCRISTINE
     Indication: Acute lymphocytic leukaemia
     Dosage: 2 MG, 1X/WEEK
     Route: 042
     Dates: start: 20220325, end: 20220325
  2. VINCRISTINE [Suspect]
     Active Substance: VINCRISTINE
     Dosage: 2 MG, 1X/WEEK
     Route: 042
     Dates: start: 20220401, end: 20220401
  3. VINCRISTINE [Suspect]
     Active Substance: VINCRISTINE
     Dosage: 2 MG, 1X/WEEK
     Route: 042
     Dates: start: 20220408, end: 20220408
  4. VINCRISTINE [Suspect]
     Active Substance: VINCRISTINE
     Dosage: 2 MG, 1X/WEEK
     Route: 042
     Dates: start: 20220415, end: 20220415
  5. VINCRISTINE [Suspect]
     Active Substance: VINCRISTINE
     Dosage: 2 MG, OTHER
     Route: 042
     Dates: start: 20220524, end: 20220524
  6. VINCRISTINE [Suspect]
     Active Substance: VINCRISTINE
     Dosage: 2 MG, OTHER
     Route: 042
     Dates: start: 20220601, end: 20220601
  7. VINCRISTINE [Suspect]
     Active Substance: VINCRISTINE
     Dosage: 2 MG, OTHER
     Route: 042
     Dates: start: 20220707, end: 20220707
  8. VINCRISTINE [Suspect]
     Active Substance: VINCRISTINE
     Dosage: 2 MG, OTHER
     Route: 042
     Dates: start: 20220714, end: 20220714
  9. VINCRISTINE [Suspect]
     Active Substance: VINCRISTINE
     Dosage: 2 MG, OTHER
     Route: 042
     Dates: start: 20220823, end: 20220823
  10. VINCRISTINE [Suspect]
     Active Substance: VINCRISTINE
     Dosage: 2 MG, OTHER
     Route: 042
     Dates: start: 20220902, end: 20220902
  11. VINCRISTINE [Suspect]
     Active Substance: VINCRISTINE
     Dosage: 2 MG, OTHER
     Route: 042
     Dates: start: 20220915, end: 20220915
  12. VINCRISTINE [Suspect]
     Active Substance: VINCRISTINE
     Dosage: 2 MG, PRN
     Route: 042
     Dates: start: 20221013, end: 20221013
  13. VINCRISTINE [Suspect]
     Active Substance: VINCRISTINE
     Dosage: 2 MG, PRN
     Route: 042
     Dates: start: 20221025, end: 20221025
  14. VINCRISTINE [Suspect]
     Active Substance: VINCRISTINE
     Dosage: 2 MG, PRN
     Route: 042
     Dates: start: 20221101, end: 20221101
  15. VINCRISTINE [Suspect]
     Active Substance: VINCRISTINE
     Dosage: 2 MG, PRN
     Route: 042
     Dates: start: 20221108, end: 20221108
  16. DAUNORUBICIN [Suspect]
     Active Substance: DAUNORUBICIN
     Indication: Acute lymphocytic leukaemia
     Dosage: 55 MG, 1X/WEEK
     Route: 042
     Dates: start: 20220325, end: 20220325
  17. DAUNORUBICIN [Suspect]
     Active Substance: DAUNORUBICIN
     Dosage: 55 MG, PRN
     Route: 042
     Dates: start: 20220415, end: 20220415
  18. CYTARABINE [Suspect]
     Active Substance: CYTARABINE
     Indication: Acute lymphocytic leukaemia
     Dosage: 50 MG, OTHER
     Route: 037
     Dates: start: 20220324, end: 20220324
  19. CYTARABINE [Suspect]
     Active Substance: CYTARABINE
     Dosage: 158 MG, PRN
     Route: 058
     Dates: start: 20220510, end: 20220510
  20. CYTARABINE [Suspect]
     Active Substance: CYTARABINE
     Dosage: 158 MG, PRN
     Route: 058
     Dates: start: 20220517, end: 20220517
  21. CYTARABINE [Suspect]
     Active Substance: CYTARABINE
     Dosage: 158 MG, OTHER
     Route: 058
     Dates: start: 20220623, end: 20220623
  22. CYTARABINE [Suspect]
     Active Substance: CYTARABINE
     Dosage: 158 MG, OTHER
     Route: 058
     Dates: start: 20220630, end: 20220630
  23. CYCLOPHOSPHAMIDE [Suspect]
     Active Substance: CYCLOPHOSPHAMIDE
     Indication: Acute lymphocytic leukaemia
     Dosage: 2110 MG, PRN
     Route: 042
     Dates: start: 20220510, end: 20220510
  24. CYCLOPHOSPHAMIDE [Suspect]
     Active Substance: CYCLOPHOSPHAMIDE
     Dosage: 2110 MG, OTHER
     Route: 042
     Dates: start: 20220623, end: 20220623
  25. MERCAPTOPURINE [Suspect]
     Active Substance: MERCAPTOPURINE
     Indication: Acute lymphocytic leukaemia
     Dosage: 125 MG, QD
     Route: 048
     Dates: start: 20220510, end: 20220726
  26. DEXAMETHASONE [Suspect]
     Active Substance: DEXAMETHASONE
     Indication: Acute lymphocytic leukaemia
     Dosage: 10 MG, BID
     Route: 048
     Dates: start: 20220325, end: 20220328
  27. DEXAMETHASONE [Suspect]
     Active Substance: DEXAMETHASONE
     Dosage: 12 MG, PRN
     Route: 048
     Dates: start: 20220510, end: 20220510
  28. DEXAMETHASONE [Suspect]
     Active Substance: DEXAMETHASONE
     Dosage: 12 MG, OTHER
     Route: 048
     Dates: start: 20220623, end: 20220623
  29. DEXAMETHASONE [Suspect]
     Active Substance: DEXAMETHASONE
     Dosage: 12 MG, OTHER
     Route: 048
     Dates: start: 20220915, end: 20220915
  30. DEXAMETHASONE [Suspect]
     Active Substance: DEXAMETHASONE
     Dosage: 12 MG, OTHER
     Route: 048
     Dates: start: 20221013, end: 20221013
  31. DEXAMETHASONE [Suspect]
     Active Substance: DEXAMETHASONE
     Dosage: 10 MG, BID
     Route: 048
     Dates: start: 20221025, end: 20221101
  32. METHOTREXATE [Concomitant]
     Active Substance: METHOTREXATE
     Indication: Acute lymphocytic leukaemia
     Dosage: 15 MG, OTHER
     Route: 037
     Dates: start: 20220401, end: 20220401
  33. METHOTREXATE [Concomitant]
     Active Substance: METHOTREXATE
     Dosage: 15 MG, OTHER
     Route: 037
     Dates: start: 20220421, end: 20220421
  34. METHOTREXATE [Concomitant]
     Active Substance: METHOTREXATE
     Dosage: 15 MG, OTHER
     Route: 037
     Dates: start: 20220510, end: 20220510
  35. METHOTREXATE [Concomitant]
     Active Substance: METHOTREXATE
     Dosage: 15 MG, PRN
     Route: 037
     Dates: start: 20220517, end: 20220517
  36. METHOTREXATE [Concomitant]
     Active Substance: METHOTREXATE
     Dosage: 15 MG, OTHER
     Route: 037
     Dates: start: 20220601, end: 20220601
  37. METHOTREXATE [Concomitant]
     Active Substance: METHOTREXATE
     Dosage: 15 MG, OTHER
     Route: 037
     Dates: start: 20220607, end: 20220607
  38. METHOTREXATE [Concomitant]
     Active Substance: METHOTREXATE
     Dosage: 15 MG, OTHER
     Route: 037
     Dates: start: 20220823, end: 20220823
  39. METHOTREXATE [Concomitant]
     Active Substance: METHOTREXATE
     Dosage: 207 MG, OTHER
     Route: 042
     Dates: start: 20220823, end: 20220823
  40. METHOTREXATE [Concomitant]
     Active Substance: METHOTREXATE
     Dosage: 207 MG, OTHER
     Route: 042
     Dates: start: 20220915, end: 20220915
  41. METHOTREXATE [Concomitant]
     Active Substance: METHOTREXATE
     Dosage: 15 MG, PRN
     Route: 037
     Dates: start: 20220920, end: 20220920
  42. METHOTREXATE [Concomitant]
     Active Substance: METHOTREXATE
     Dosage: 15 MG, PRN
     Route: 037
     Dates: start: 20221025, end: 20221025
  43. DOXORUBICIN [Concomitant]
     Active Substance: DOXORUBICIN
     Indication: Acute lymphocytic leukaemia
     Dosage: 51 MG, PRN
     Route: 042
     Dates: start: 20221025, end: 20221025
  44. DOXORUBICIN [Concomitant]
     Active Substance: DOXORUBICIN
     Dosage: 51 MG, PRN
     Route: 042
     Dates: start: 20221101, end: 20221101
  45. DOXORUBICIN [Concomitant]
     Active Substance: DOXORUBICIN
     Dosage: 51 MG, PRN
     Route: 042
     Dates: start: 20221108, end: 20221108
  46. LORAZEPAM [Concomitant]
     Active Substance: LORAZEPAM
     Indication: Anxiety
     Dosage: 0.5 MG, PRN
     Route: 048
     Dates: start: 20220322
  47. FLONASE [Concomitant]
     Active Substance: FLUTICASONE PROPIONATE
     Indication: Rhinitis
     Dosage: 1 DF, QD
     Route: 045
     Dates: start: 20220323, end: 20220408
  48. ACYCLOVIR [Concomitant]
     Active Substance: ACYCLOVIR
     Indication: Antiviral prophylaxis
     Dosage: 400 MG, BID
     Route: 048
     Dates: start: 20220322, end: 20220408
  49. PROTONIX [Concomitant]
     Active Substance: PANTOPRAZOLE SODIUM
     Indication: Prophylaxis
     Dosage: 40 MG, QD
     Route: 048
     Dates: start: 20220326, end: 20220408
  50. PROTONIX [Concomitant]
     Active Substance: PANTOPRAZOLE SODIUM
     Indication: Gastrooesophageal reflux disease
     Dosage: 40 MG, QD
     Route: 048
     Dates: start: 20220717
  51. CARNITOR [Concomitant]
     Active Substance: LEVOCARNITINE
     Indication: Supportive care
     Dosage: 660 MG, TID
     Route: 048
     Dates: start: 20220327
  52. NORVASC [Concomitant]
     Active Substance: AMLODIPINE BESYLATE
     Indication: Hypertension
     Dosage: 5 MG, QD
     Route: 048
     Dates: start: 20220328
  53. CYANOCOBALAMIN [Concomitant]
     Active Substance: CYANOCOBALAMIN
     Indication: Supportive care
     Dosage: 10 MG, QD
     Route: 048
     Dates: start: 20220330
  54. TYLENOL [Concomitant]
     Active Substance: ACETAMINOPHEN
     Indication: Pain
     Dosage: 650 MG, PRN
     Route: 048
     Dates: start: 20220401
  55. TYLENOL [Concomitant]
     Active Substance: ACETAMINOPHEN
     Indication: Pyrexia
  56. ENALAPRIL [Concomitant]
     Active Substance: ENALAPRIL
     Indication: Hypertension
     Dosage: 5 MG, QD
     Route: 048
     Dates: start: 20220408
  57. ZOFRAN [Concomitant]
     Active Substance: ONDANSETRON HYDROCHLORIDE
     Indication: Supportive care
     Dosage: 8 MG, PRN
     Route: 048
     Dates: start: 20220408
  58. ZOFRAN [Concomitant]
     Active Substance: ONDANSETRON HYDROCHLORIDE
     Indication: Premedication
  59. FLUCONAZOLE [Concomitant]
     Active Substance: FLUCONAZOLE
     Indication: Antifungal treatment
     Dosage: 200 MG, BID
     Route: 048
     Dates: start: 20220408
  60. FLUCONAZOLE [Concomitant]
     Active Substance: FLUCONAZOLE
     Indication: Antifungal prophylaxis
  61. FENOFIBRATE [Concomitant]
     Active Substance: FENOFIBRATE
     Indication: Hypercholesterolaemia
     Dosage: 160 MG, QD
     Route: 048
     Dates: start: 20220616
  62. COMPAZINE [Concomitant]
     Active Substance: PROCHLORPERAZINE MALEATE
     Indication: Prophylaxis of nausea and vomiting
     Dosage: 10 MG, PRN
     Route: 048
     Dates: start: 20220616
  63. ZYPREXA [Concomitant]
     Active Substance: OLANZAPINE
     Indication: Prophylaxis of nausea and vomiting
     Dosage: 5 MG, QD
     Route: 048
     Dates: start: 20220616

REACTIONS (5)
  - Thrombocytopenia [Recovered/Resolved]
  - Anaemia [Recovered/Resolved]
  - Febrile neutropenia [Recovered/Resolved]
  - Pneumonia bacterial [Recovered/Resolved]
  - Thrombocytopenia [Recovered/Resolved]

NARRATIVE: CASE EVENT DATE: 20220328
